FAERS Safety Report 15976773 (Version 1)
Quarter: 2019Q1

REPORT INFORMATION
  Report Type: Spontaneous
  Country: US (occurrence: US)
  Receive Date: 20190218
  Receipt Date: 20190218
  Transmission Date: 20190418
  Serious: No
  Sender: FDA-Public Use
  Company Number: US-PFIZER INC-2019063962

PATIENT
  Age: 56 Year
  Sex: Female

DRUGS (2)
  1. COPAXONE [Concomitant]
     Active Substance: GLATIRAMER ACETATE
     Dosage: 40 MG, 3X A WEEK
  2. LYRICA [Suspect]
     Active Substance: PREGABALIN
     Indication: POLYNEUROPATHY IDIOPATHIC PROGRESSIVE
     Dosage: 100 MG, 3X/DAY (TID)
     Route: 048

REACTIONS (3)
  - Pollakiuria [Unknown]
  - Drug ineffective for unapproved indication [Unknown]
  - Urinary hesitation [Unknown]
